FAERS Safety Report 8737253 (Version 2)
Quarter: 2013Q1

REPORT INFORMATION
  Report Type: Spontaneous
  Country: US (occurrence: US)
  Receive Date: 20120822
  Receipt Date: 20130208
  Transmission Date: 20140127
  Serious: No
  Sender: FDA-Public Use
  Company Number: US-ASTRAZENECA-2011SE29155

PATIENT
  Age: 60 Year
  Sex: Female

DRUGS (4)
  1. SYMBICORT PMDI [Suspect]
     Indication: ASTHMA
     Route: 055
  2. SYMBICORT PMDI [Suspect]
     Indication: CHRONIC OBSTRUCTIVE PULMONARY DISEASE
     Route: 055
  3. NEXIUM [Suspect]
     Route: 048
  4. ALLEGRA [Concomitant]

REACTIONS (4)
  - Nasopharyngitis [Unknown]
  - Sinus disorder [Unknown]
  - Drug effect increased [Unknown]
  - Tremor [Unknown]
